FAERS Safety Report 13664685 (Version 2)
Quarter: 2017Q3

REPORT INFORMATION
  Report Type: Spontaneous
  Country: US (occurrence: US)
  Receive Date: 20170619
  Receipt Date: 20170713
  Transmission Date: 20171127
  Serious: No
  Sender: FDA-Public Use
  Company Number: US-GLAXOSMITHKLINE-US2017093044

PATIENT
  Sex: Female
  Weight: 81.63 kg

DRUGS (1)
  1. VENTOLIN HFA [Suspect]
     Active Substance: ALBUTEROL SULFATE
     Indication: PNEUMONIA
     Dosage: 2 PUFF(S), QID
     Route: 055

REACTIONS (3)
  - Product cleaning inadequate [Unknown]
  - Off label use [Unknown]
  - Device use error [Unknown]
